FAERS Safety Report 4754529-7 (Version None)
Quarter: 2005Q3

REPORT INFORMATION
  Report Type: 
  Country: None (occurrence: None)
  Receive Date: 20050826
  Receipt Date: 20020204
  Transmission Date: 20060218
  Serious: Yes (Other)
  Sender: FDA-Public Use
  Company Number: KII-2002-0014370

PATIENT
  Sex: Male

DRUGS (4)
  1. OXYCONTIN [Suspect]
     Dosage: 80 MG, Q12H
  2. COCAINE (COCAINE) [Suspect]
  3. HEROIN (DIAMORPHINE) [Suspect]
  4. PERCOCET [Concomitant]

REACTIONS (1)
  - DRUG ABUSER [None]
